FAERS Safety Report 15365310 (Version 2)
Quarter: 2018Q3

REPORT INFORMATION
  Report Type: Report from Study
  Country: BR (occurrence: BR)
  Receive Date: 20180910
  Receipt Date: 20180927
  Transmission Date: 20181010
  Serious: Yes (Other)
  Sender: FDA-Public Use
  Company Number: BR-ROCHE-1823589

PATIENT
  Age: 85 Year
  Sex: Female
  Weight: 64 kg

DRUGS (15)
  1. ACTEMRA [Suspect]
     Active Substance: TOCILIZUMAB
     Indication: RHEUMATOID ARTHRITIS
     Route: 042
     Dates: start: 20131218
  2. ACTEMRA [Suspect]
     Active Substance: TOCILIZUMAB
     Route: 042
     Dates: start: 20170201
  3. METHOTREXATE. [Suspect]
     Active Substance: METHOTREXATE
     Indication: PRODUCT USED FOR UNKNOWN INDICATION
     Route: 065
  4. DEFLAZACORT [Concomitant]
     Active Substance: DEFLAZACORT
     Indication: RHEUMATOID ARTHRITIS
     Route: 065
  5. METHOTREXATE. [Concomitant]
     Active Substance: METHOTREXATE
  6. SIMVASTATIN. [Concomitant]
     Active Substance: SIMVASTATIN
  7. FOLIC ACID. [Concomitant]
     Active Substance: FOLIC ACID
  8. QUETIAPINE. [Concomitant]
     Active Substance: QUETIAPINE
  9. METAMUCIL [Concomitant]
     Active Substance: PLANTAGO SEED
  10. ACTEMRA [Suspect]
     Active Substance: TOCILIZUMAB
     Dosage: JUL/2016 INTERRUPTED
     Route: 042
     Dates: start: 20160701
  11. ACTEMRA [Suspect]
     Active Substance: TOCILIZUMAB
     Route: 042
     Dates: start: 20161201
  12. PANTOPRAZOLE [Concomitant]
     Active Substance: PANTOPRAZOLE
     Indication: GASTRIC DISORDER
  13. OMEGA?3 ACIDS [Concomitant]
     Active Substance: OMEGA-3 FATTY ACIDS
  14. ACTEMRA [Suspect]
     Active Substance: TOCILIZUMAB
     Route: 042
     Dates: start: 20131223
  15. ARADOIS [Concomitant]
     Active Substance: LOSARTAN POTASSIUM

REACTIONS (14)
  - Urinary tract infection [Recovering/Resolving]
  - Immunodeficiency [Unknown]
  - Labyrinthitis [Recovering/Resolving]
  - Anaemia [Not Recovered/Not Resolved]
  - Nephritis [Recovering/Resolving]
  - Gait disturbance [Recovered/Resolved]
  - Pneumonia [Recovering/Resolving]
  - Haemorrhage [Recovering/Resolving]
  - Speech disorder [Recovered/Resolved]
  - Cerebrovascular accident [Unknown]
  - Dysgraphia [Recovered/Resolved]
  - Joint swelling [Not Recovered/Not Resolved]
  - Arthralgia [Not Recovered/Not Resolved]
  - Renal disorder [Unknown]

NARRATIVE: CASE EVENT DATE: 201608
